FAERS Safety Report 9152715 (Version 3)
Quarter: 2013Q1

REPORT INFORMATION
  Report Type: Report from Study
  Country: DE (occurrence: DE)
  Receive Date: 20130308
  Receipt Date: 20130315
  Transmission Date: 20140127
  Serious: Yes (Life-Threatening, Hospitalization, Other)
  Sender: FDA-Public Use
  Company Number: DE-009507513-1303DEU002038

PATIENT
  Age: 60 Year
  Sex: Female

DRUGS (5)
  1. MK-0217 [Suspect]
     Indication: OSTEOPOROSIS
     Route: 048
  2. ALENDRONATE SODIUM [Suspect]
     Indication: OSTEOPOROSIS
     Dosage: UNK
     Route: 048
  3. METEX (METFORMIN HYDROCHLORIDE) [Concomitant]
     Indication: RHEUMATOID ARTHRITIS
     Dosage: 20 MG, QD
     Dates: start: 2006
  4. QUENSYL [Concomitant]
     Indication: RHEUMATOID ARTHRITIS
     Dosage: UNK
     Route: 048
     Dates: start: 2006
  5. DECORTIN [Concomitant]
     Indication: RHEUMATOID ARTHRITIS
     Dosage: 7.5 MG, QD
     Route: 048
     Dates: start: 2006

REACTIONS (2)
  - Ulcer haemorrhage [Recovering/Resolving]
  - Pathological fracture [Unknown]
